FAERS Safety Report 23859780 (Version 2)
Quarter: 2024Q2

REPORT INFORMATION
  Report Type: Spontaneous
  Country: US (occurrence: None)
  Receive Date: 20240515
  Receipt Date: 20240522
  Transmission Date: 20240715
  Serious: Yes (Other)
  Sender: FDA-Public Use
  Company Number: 2024A113567

PATIENT
  Sex: Male

DRUGS (1)
  1. SEROQUEL [Suspect]
     Active Substance: QUETIAPINE FUMARATE
     Route: 048

REACTIONS (9)
  - Blood sodium decreased [Unknown]
  - Anxiety [Unknown]
  - Panic attack [Unknown]
  - Chest pain [Unknown]
  - Initial insomnia [Unknown]
  - Feeling abnormal [Unknown]
  - Hypertension [Unknown]
  - Insomnia [Unknown]
  - Adverse event [Unknown]
